FAERS Safety Report 9897185 (Version 3)
Quarter: 2014Q2

REPORT INFORMATION
  Report Type: Spontaneous
  Country: US (occurrence: US)
  Receive Date: 20140214
  Receipt Date: 20140428
  Transmission Date: 20141212
  Serious: No
  Sender: FDA-Public Use
  Company Number: US-009507513-1402USA004710

PATIENT
  Age: 18 Year
  Sex: Female
  Weight: 63.49 kg

DRUGS (2)
  1. NEXPLANON [Suspect]
     Indication: CONTRACEPTION
     Dosage: UNK
     Route: 059
     Dates: start: 201312
  2. IMPLANON [Concomitant]
     Indication: CONTRACEPTION
     Dosage: UNK
     Route: 059
     Dates: end: 201312

REACTIONS (2)
  - Device breakage [Unknown]
  - No adverse event [Unknown]
